FAERS Safety Report 10400412 (Version 1)
Quarter: 2014Q3

REPORT INFORMATION
  Report Type: Spontaneous
  Country: US (occurrence: US)
  Receive Date: 20140821
  Receipt Date: 20140821
  Transmission Date: 20150326
  Serious: No
  Sender: FDA-Public Use
  Company Number: US-ASTRAZENECA-2013SE80967

PATIENT
  Age: 70 Year
  Sex: Female
  Weight: 113.4 kg

DRUGS (15)
  1. METFORMIN [Concomitant]
     Active Substance: METFORMIN HYDROCHLORIDE
     Indication: DIABETES MELLITUS
     Route: 048
     Dates: start: 2005
  2. MINOCYCLINE [Concomitant]
     Active Substance: MINOCYCLINE\MINOCYCLINE HYDROCHLORIDE
     Indication: MUCOUS MEMBRANE DISORDER
     Route: 048
     Dates: start: 2011
  3. ALLOPURINOL. [Concomitant]
     Active Substance: ALLOPURINOL
     Indication: GOUT
     Route: 048
     Dates: start: 2011
  4. PROVENTIL [Concomitant]
     Active Substance: ALBUTEROL
     Indication: RESPIRATORY DISORDER
     Dosage: 2 PUFFS PRN
     Route: 055
  5. ORAL RINSE (NOT SPECIFIED) [Concomitant]
     Route: 048
  6. METOPROLOL TARTRATE. [Concomitant]
     Active Substance: METOPROLOL TARTRATE
     Indication: HYPERTENSION
     Route: 048
     Dates: start: 1992
  7. ADVAIR HFA [Concomitant]
     Active Substance: FLUTICASONE PROPIONATE\SALMETEROL XINAFOATE
  8. NOVOLIN 70/30 [Concomitant]
     Active Substance: INSULIN HUMAN
     Indication: DIABETES MELLITUS
     Dosage: 70/30, 70 U TWO TIMES A DAY
     Route: 058
     Dates: start: 2010
  9. MINOCYCLINE [Concomitant]
     Active Substance: MINOCYCLINE\MINOCYCLINE HYDROCHLORIDE
     Indication: IMMUNE SYSTEM DISORDER
     Route: 048
     Dates: start: 2011
  10. SYMBICORT [Suspect]
     Active Substance: BUDESONIDE\FORMOTEROL FUMARATE DIHYDRATE
     Indication: CHRONIC OBSTRUCTIVE PULMONARY DISEASE
     Dosage: 160/4.5, 2 PUFFS BID
     Route: 055
     Dates: start: 2013
  11. POTASSIUM CL [Concomitant]
     Active Substance: POTASSIUM CHLORIDE
     Indication: DRUG THERAPY
     Route: 048
     Dates: start: 2003
  12. SYMBICORT [Suspect]
     Active Substance: BUDESONIDE\FORMOTEROL FUMARATE DIHYDRATE
     Indication: CHRONIC OBSTRUCTIVE PULMONARY DISEASE
     Dosage: 160/4.5, 2 PUFFS BID
     Route: 055
     Dates: start: 2013
  13. OMEPRAZOLE. [Suspect]
     Active Substance: OMEPRAZOLE
     Indication: GASTROOESOPHAGEAL REFLUX DISEASE
     Route: 048
     Dates: start: 2011
  14. SPIRIVA [Concomitant]
     Active Substance: TIOTROPIUM BROMIDE MONOHYDRATE
     Indication: CHRONIC OBSTRUCTIVE PULMONARY DISEASE
     Dosage: DAILY
     Route: 055
  15. FUROSEMIDE. [Concomitant]
     Active Substance: FUROSEMIDE
     Indication: FLUID RETENTION
     Route: 048
     Dates: start: 2003

REACTIONS (11)
  - Odynophagia [Not Recovered/Not Resolved]
  - Initial insomnia [Unknown]
  - Glossodynia [Recovered/Resolved]
  - Disease recurrence [Unknown]
  - Secretion discharge [Not Recovered/Not Resolved]
  - Cough [Unknown]
  - Mouth ulceration [Recovered/Resolved]
  - Memory impairment [Not Recovered/Not Resolved]
  - Wheezing [Not Recovered/Not Resolved]
  - Therapeutic response decreased [Unknown]
  - Dysphonia [Unknown]

NARRATIVE: CASE EVENT DATE: 2013
